FAERS Safety Report 4635066-7 (Version None)
Quarter: 2005Q2

REPORT INFORMATION
  Report Type: 
  Country: None (occurrence: None)
  Receive Date: 20050414
  Receipt Date: 20050322
  Transmission Date: 20051028
  Serious: Yes (Other)
  Sender: FDA-Public Use
  Company Number: US-ROCHE-399690

PATIENT
  Age: 50 Year
  Sex: Female
  Weight: 75.3 kg

DRUGS (7)
  1. PEGASYS [Suspect]
     Route: 058
     Dates: start: 20040206, end: 20040924
  2. COPEGUS [Suspect]
     Route: 048
     Dates: start: 20040206, end: 20041001
  3. PEG-INTRON [Suspect]
     Route: 058
     Dates: start: 20031017, end: 20040130
  4. CARDIZEM [Concomitant]
     Dosage: DOSAGE REGIMEN REPORTED AS QD
     Route: 048
     Dates: end: 20040915
  5. ZOLOFT [Concomitant]
     Indication: DEPRESSION
     Dosage: DOSAGE REGIMEN REPORTED AS QD
     Route: 048
     Dates: start: 20040129
  6. TRAZODONE HCL [Concomitant]
     Indication: DEPRESSION
     Dosage: DOSAGE REGIMEN REPORTED AS QD
     Route: 048
     Dates: start: 20040303, end: 20040915
  7. ZYRTEC [Concomitant]
     Indication: PRURITUS
     Dosage: DOSAGE REGIMEN REPORTED AS QD
     Route: 048
     Dates: start: 20040303, end: 20040915

REACTIONS (1)
  - DENTAL CARIES [None]
